FAERS Safety Report 4398958-2 (Version None)
Quarter: 2004Q3

REPORT INFORMATION
  Report Type: 
  Country: None (occurrence: None)
  Receive Date: 20040715
  Receipt Date: 20040709
  Transmission Date: 20050211
  Serious: Yes (Other)
  Sender: FDA-Public Use
  Company Number: JP-MERCK-0407USA01022

PATIENT
  Age: 54 Year
  Sex: Female

DRUGS (4)
  1. FLUTICASONE PROPIONATE [Concomitant]
     Route: 055
  2. SINGULAIR [Suspect]
     Route: 048
     Dates: start: 20030101
  3. PRAVASTATIN SODIUM [Concomitant]
     Route: 048
     Dates: start: 19990101, end: 20040702
  4. SEREVENT [Concomitant]
     Route: 055

REACTIONS (1)
  - RHABDOMYOLYSIS [None]
